FAERS Safety Report 6711411-3 (Version None)
Quarter: 2010Q2

REPORT INFORMATION
  Report Type: 
  Country: None (occurrence: None)
  Receive Date: 20100505
  Receipt Date: 20100428
  Transmission Date: 20101027
  Serious: Yes (Other)
  Sender: FDA-Public Use
  Company Number: JP-PFIZER INC-2010043041

PATIENT
  Age: 76 Year
  Sex: Male

DRUGS (6)
  1. ATARAX [Suspect]
     Dosage: UNK
     Route: 042
     Dates: start: 20100317, end: 20100326
  2. SOSEGON [Suspect]
     Dosage: UNK
  3. LOXONIN [Concomitant]
  4. CYTOTEC [Concomitant]
  5. NEUROTROPIN [Concomitant]
  6. ANPLAG [Concomitant]

REACTIONS (1)
  - BLOOD CREATINE PHOSPHOKINASE INCREASED [None]
